FAERS Safety Report 9360872 (Version 2)
Quarter: 2013Q3

REPORT INFORMATION
  Report Type: Report from Study
  Country: NL (occurrence: NL)
  Receive Date: 20130621
  Receipt Date: 20130711
  Transmission Date: 20140515
  Serious: Yes (Hospitalization)
  Sender: FDA-Public Use
  Company Number: NL-ROCHE-1236566

PATIENT
  Sex: Female
  Weight: 48 kg

DRUGS (5)
  1. TOCILIZUMAB [Suspect]
     Indication: RHEUMATOID ARTHRITIS
     Dosage: LAST DOSE PRIOR TO SAE WAS TAKEN ON 15/MAR/2013
     Route: 042
     Dates: start: 20120713
  2. HYDROXYCHLOROQUINE [Concomitant]
     Route: 048
     Dates: start: 20040301
  3. SULFASALAZINE [Concomitant]
     Route: 048
     Dates: start: 20120702
  4. ETORICOXIB [Concomitant]
     Route: 048
     Dates: start: 20081016
  5. PARACETAMOL/CODEINE [Concomitant]
     Dosage: 500MG/10MG
     Route: 048

REACTIONS (1)
  - Gallbladder disorder [Unknown]
